FAERS Safety Report 18455391 (Version 1)
Quarter: 2020Q4

REPORT INFORMATION
  Report Type: Other
  Country: NP (occurrence: NP)
  Receive Date: 20201102
  Receipt Date: 20201102
  Transmission Date: 20210114
  Serious: Yes (Hospitalization)
  Sender: FDA-Public Use
  Company Number: NP-US-PROVELL PHARMACEUTICALS LLC-9194141

PATIENT
  Age: 29 Year
  Sex: Female

DRUGS (4)
  1. PROPRANOLOL [Interacting]
     Active Substance: PROPRANOLOL HYDROCHLORIDE
     Indication: ADJUSTMENT DISORDER
  2. SERTRALINE [Interacting]
     Active Substance: SERTRALINE HYDROCHLORIDE
     Indication: ADJUSTMENT DISORDER
  3. LEVOTHYROXINE. [Suspect]
     Active Substance: LEVOTHYROXINE
     Indication: HYPOTHYROIDISM
  4. CLONAZEPAM. [Concomitant]
     Active Substance: CLONAZEPAM
     Indication: ADJUSTMENT DISORDER

REACTIONS (7)
  - Headache [Unknown]
  - Loss of consciousness [Recovered/Resolved]
  - Confusional state [Unknown]
  - Paraesthesia [Unknown]
  - Thyroxine increased [Recovering/Resolving]
  - Intentional overdose [Unknown]
  - Drug interaction [Unknown]
